FAERS Safety Report 22295117 (Version 1)
Quarter: 2023Q2

REPORT INFORMATION
  Report Type: Spontaneous
  Country: US (occurrence: None)
  Receive Date: 20230505
  Receipt Date: 20230505
  Transmission Date: 20230722
  Serious: Yes (Other)
  Sender: FDA-Public Use
  Company Number: None

PATIENT
  Sex: 0

DRUGS (2)
  1. AMONDYS 45 [Suspect]
     Active Substance: CASIMERSEN
  2. EXONDYS 51 [Suspect]
     Active Substance: ETEPLIRSEN

REACTIONS (3)
  - Product preparation error [None]
  - Intercepted product preparation error [None]
  - Product packaging confusion [None]

NARRATIVE: CASE EVENT DATE: 20230505
